FAERS Safety Report 4420441-6 (Version None)
Quarter: 2004Q3

REPORT INFORMATION
  Report Type: 
  Country: None (occurrence: None)
  Receive Date: 20040809
  Receipt Date: 20040301
  Transmission Date: 20050211
  Serious: No
  Sender: FDA-Public Use
  Company Number: US-GLAXOSMITHKLINE-A0500663A

PATIENT
  Age: 71 Year
  Sex: Male

DRUGS (7)
  1. PAXIL CR [Suspect]
     Indication: DEPRESSION
     Dosage: 25MG PER DAY
     Route: 048
     Dates: start: 20031101
  2. WINE [Suspect]
     Indication: DRUG USE FOR UNKNOWN INDICATION
     Dosage: 2U WEEKLY
     Route: 048
  3. XANAX [Concomitant]
  4. FLOMAX [Concomitant]
  5. GLUCOPHAGE [Concomitant]
  6. PRILOSEC [Concomitant]
  7. VASOTEC [Concomitant]

REACTIONS (2)
  - DIZZINESS [None]
  - WEIGHT DECREASED [None]
